FAERS Safety Report 12963720 (Version 2)
Quarter: 2017Q2

REPORT INFORMATION
  Report Type: Spontaneous
  Country: US (occurrence: US)
  Receive Date: 20161122
  Receipt Date: 20170417
  Transmission Date: 20170830
  Serious: No
  Sender: FDA-Public Use
  Company Number: US-BAYER-2016-222550

PATIENT
  Sex: Male

DRUGS (5)
  1. METHENAMINE HIPPURATE [METHENAMINE] [Concomitant]
     Dosage: 1 G, UNK
  2. GABAPENTIN. [Concomitant]
     Active Substance: GABAPENTIN
  3. CEPHALEXIN. [Concomitant]
     Active Substance: CEPHALEXIN
     Dosage: UNK
  4. VITAMIN D [Concomitant]
     Active Substance: CHOLECALCIFEROL
     Dosage: 2000 U, UNK
  5. BETASERON [Suspect]
     Active Substance: INTERFERON BETA-1B
     Indication: MULTIPLE SCLEROSIS
     Dosage: 0.25 MG, QOD

REACTIONS (3)
  - Injection site discomfort [Recovered/Resolved]
  - Drug dose omission [None]
  - Injection site pain [Recovered/Resolved]
